FAERS Safety Report 6278965-5 (Version None)
Quarter: 2009Q3

REPORT INFORMATION
  Report Type: 
  Country: None (occurrence: None)
  Receive Date: 20090723
  Receipt Date: 20090717
  Transmission Date: 20100115
  Serious: Yes (Other)
  Sender: FDA-Public Use
  Company Number: US-ELI_LILLY_AND_COMPANY-US200907003835

PATIENT
  Sex: Female

DRUGS (8)
  1. BYETTA [Suspect]
     Indication: TYPE 2 DIABETES MELLITUS
     Dosage: 5 UG, 2/D
     Route: 058
     Dates: start: 20090101, end: 20090101
  2. BYETTA [Suspect]
     Dosage: 10 UG, 2/D
     Route: 058
     Dates: start: 20090101, end: 20090715
  3. PROAIR HFA [Concomitant]
     Dosage: UNK, AS NEEDED
     Route: 065
  4. CARDIZEM [Concomitant]
     Dosage: UNK, UNKNOWN
     Route: 065
  5. LIPITOR [Concomitant]
     Dosage: 40 MG, DAILY (1/D)
     Route: 065
  6. DIOVAN [Concomitant]
     Dosage: 80 MG, DAILY (1/D)
     Route: 065
  7. LISINOPRIL [Concomitant]
     Dosage: 10 MG, DAILY (1/D)
     Route: 065
  8. LABETALOL HCL [Concomitant]
     Dosage: UNK, 2/D

REACTIONS (2)
  - PANCREATITIS ACUTE [None]
  - RASH [None]
